FAERS Safety Report 9583584 (Version 2)
Quarter: 2013Q4

REPORT INFORMATION
  Report Type: Spontaneous
  Country: US (occurrence: US)
  Receive Date: 20131002
  Receipt Date: 20131226
  Transmission Date: 20140711
  Serious: Yes (Other)
  Sender: FDA-Public Use
  Company Number: US-AMGEN-USASP2013047734

PATIENT
  Age: 62 Year
  Sex: Female
  Weight: 79.8 kg

DRUGS (12)
  1. ENBREL [Suspect]
     Indication: RHEUMATOID ARTHRITIS
     Dosage: 50 MG, QWK
     Route: 058
     Dates: start: 20060524
  2. CALCIUM + VIT D [Concomitant]
     Dosage: UNK
  3. FISH OIL [Concomitant]
     Dosage: UNK
  4. VITAMIN C                          /00008001/ [Concomitant]
     Dosage: 500 MG, UNK
  5. GLUCOSAMIN CHONDR [Concomitant]
     Dosage: 250-200,UNK
  6. CENTRUM                            /02217401/ [Concomitant]
     Dosage: UNK
  7. ESTRACE VAGINAL [Concomitant]
     Dosage: 0.1 MG/G, UNK
  8. STOOL SOFTENER [Concomitant]
     Dosage: 100-30, UNK
  9. PREVACID [Concomitant]
     Dosage: 15 MG DR
  10. PREDNISONE [Concomitant]
     Dosage: 2.5 MG, UNK
  11. VICODIN [Concomitant]
     Dosage: 5-300 MG. UNK
  12. PLAQUENIL                          /00072602/ [Concomitant]
     Dosage: 400 MG, A DAY

REACTIONS (20)
  - Systemic lupus erythematosus [Not Recovered/Not Resolved]
  - Pulmonary fibrosis [Not Recovered/Not Resolved]
  - Spider vein [Not Recovered/Not Resolved]
  - Pyrexia [Not Recovered/Not Resolved]
  - Red blood cell sedimentation rate increased [Not Recovered/Not Resolved]
  - Insomnia [Not Recovered/Not Resolved]
  - C-reactive protein abnormal [Not Recovered/Not Resolved]
  - Visual impairment [Not Recovered/Not Resolved]
  - Fatigue [Not Recovered/Not Resolved]
  - Scleroderma [Not Recovered/Not Resolved]
  - Stomatitis [Not Recovered/Not Resolved]
  - Musculoskeletal discomfort [Not Recovered/Not Resolved]
  - Arthritis [Not Recovered/Not Resolved]
  - Stress [Not Recovered/Not Resolved]
  - Chondropathy [Not Recovered/Not Resolved]
  - Joint effusion [Not Recovered/Not Resolved]
  - Joint swelling [Not Recovered/Not Resolved]
  - Gastroenteritis viral [Unknown]
  - Localised infection [Recovered/Resolved]
  - Injection site nodule [Not Recovered/Not Resolved]
